FAERS Safety Report 9293468 (Version 1)
Quarter: 2013Q2

REPORT INFORMATION
  Report Type: Spontaneous
  Country: US (occurrence: US)
  Receive Date: 20130517
  Receipt Date: 20130517
  Transmission Date: 20140414
  Serious: No
  Sender: FDA-Public Use
  Company Number: US-009507513-1305USA007103

PATIENT
  Sex: Male

DRUGS (2)
  1. SAPHRIS [Suspect]
     Dosage: 5 MG, HS
     Route: 060
     Dates: start: 201204, end: 201303
  2. ZYPREXA [Concomitant]

REACTIONS (3)
  - Tardive dyskinesia [Recovering/Resolving]
  - Underdose [Unknown]
  - Inappropriate schedule of drug administration [Unknown]
